FAERS Safety Report 12678457 (Version 1)
Quarter: 2016Q3

REPORT INFORMATION
  Report Type: Spontaneous
  Country: BR (occurrence: BR)
  Receive Date: 20160823
  Receipt Date: 20160823
  Transmission Date: 20161109
  Serious: Yes (Death, Hospitalization, Other)
  Sender: FDA-Public Use
  Company Number: BR-ALEXION PHARMACEUTICALS INC.-A201405045

PATIENT
  Age: 6 Year
  Sex: Female

DRUGS (1)
  1. SOLIRIS [Suspect]
     Active Substance: ECULIZUMAB
     Indication: HAEMOLYTIC URAEMIC SYNDROME
     Dosage: UNK
     Route: 042
     Dates: start: 20141128, end: 20141216

REACTIONS (12)
  - Hypertension [Unknown]
  - Oedema [Unknown]
  - Cardio-respiratory arrest [Fatal]
  - Necrosis [Fatal]
  - Cerebral ischaemia [Unknown]
  - Polyuria [Recovering/Resolving]
  - Pain [Unknown]
  - Seizure [Unknown]
  - Blood lactate dehydrogenase abnormal [Fatal]
  - Anuria [Unknown]
  - Cardiac arrest [Unknown]
  - Depression [Unknown]

NARRATIVE: CASE EVENT DATE: 20141205
